FAERS Safety Report 9297701 (Version 3)
Quarter: 2013Q3

REPORT INFORMATION
  Report Type: Spontaneous
  Country: US (occurrence: US)
  Receive Date: 20130520
  Receipt Date: 20130708
  Transmission Date: 20140515
  Serious: No
  Sender: FDA-Public Use
  Company Number: US-PFIZER INC-2013153838

PATIENT
  Age: 82 Year
  Sex: Female
  Weight: 74.83 kg

DRUGS (5)
  1. XELJANZ [Suspect]
     Indication: ARTHRITIS
     Dosage: 5 MG, 2X/DAY
     Route: 048
     Dates: start: 20130418
  2. XELJANZ [Suspect]
     Dosage: 5 MG, 2X/DAY
     Route: 048
  3. ACTEMRA [Suspect]
     Indication: ARTHRITIS
     Dosage: UNK
     Dates: end: 201304
  4. ASPIRIN [Concomitant]
     Indication: ANTICOAGULANT THERAPY
     Dosage: 81 MG, UNK
  5. PLAVIX [Concomitant]
     Indication: ANTICOAGULANT THERAPY
     Dosage: 75 MG, 1X/DAY

REACTIONS (1)
  - Drug ineffective [Unknown]
